FAERS Safety Report 13544329 (Version 1)
Quarter: 2017Q2

REPORT INFORMATION
  Report Type: Spontaneous
  Country: CN (occurrence: CN)
  Receive Date: 20170515
  Receipt Date: 20170515
  Transmission Date: 20170830
  Serious: Yes (Other)
  Sender: FDA-Public Use
  Company Number: CN-LUPIN PHARMACEUTICALS INC.-2017-01776

PATIENT
  Age: 60 Year
  Sex: Male

DRUGS (10)
  1. CALTRATE D                         /00944201/ [Concomitant]
     Indication: PROPHYLAXIS
     Dosage: 600 MG, QD
     Route: 048
  2. 99 TC-METHYLENDIPHOSPHONATE [Concomitant]
     Indication: INFLAMMATION
     Dosage: 16.5 MG, QD
     Route: 065
  3. PANTOPRAZOLE                       /01263204/ [Concomitant]
     Active Substance: PANTOPRAZOLE SODIUM
     Dosage: 40 MG, EVERY 12 HRS
     Route: 065
  4. TEPRENONE [Concomitant]
     Active Substance: TEPRENONE
     Indication: PROPHYLAXIS
     Dosage: 50 MG, TID
  5. METHYLPREDNISOLONE. [Suspect]
     Active Substance: METHYLPREDNISOLONE
     Indication: RHEUMATOID ARTHRITIS
     Dosage: 8 MG, QD
     Route: 048
  6. PANTOPRAZOLE                       /01263204/ [Concomitant]
     Active Substance: PANTOPRAZOLE SODIUM
     Indication: PROPHYLAXIS
     Dosage: 40 MG, QD
     Route: 048
  7. CEFTIZOXIME [Concomitant]
     Active Substance: CEFTIZOXIME
     Indication: INFECTION
     Dosage: 1.5 G, BID
  8. CELECOXIB. [Suspect]
     Active Substance: CELECOXIB
     Indication: RHEUMATOID ARTHRITIS
     Dosage: 0.2 G, QD
     Route: 048
  9. LEFLUNOMIDE. [Suspect]
     Active Substance: LEFLUNOMIDE
     Indication: RHEUMATOID ARTHRITIS
     Dosage: 20 MG, QD
     Route: 048
  10. METHOTREXATE. [Suspect]
     Active Substance: METHOTREXATE
     Indication: RHEUMATOID ARTHRITIS
     Dosage: 10 MG/WEEK
     Route: 048

REACTIONS (2)
  - Hepatotoxicity [Recovered/Resolved]
  - Gastrointestinal haemorrhage [Unknown]
